FAERS Safety Report 8211830-2 (Version None)
Quarter: 2012Q1

REPORT INFORMATION
  Report Type: 
  Country: None (occurrence: None)
  Receive Date: 20120315
  Receipt Date: 20120309
  Transmission Date: 20120608
  Serious: No
  Sender: FDA-Public Use
  Company Number: US-PFIZER INC-2012064937

PATIENT

DRUGS (3)
  1. AMLODIPINE/VALSARTAN [Concomitant]
     Dosage: 10 MG/ 160 MG, ONE TABLET DAILY
  2. METOPROLOL [Concomitant]
     Dosage: 50 MG, ONE TABLET DAILY
  3. PROTONIX [Suspect]
     Dosage: 40 MG, 1X/DAY

REACTIONS (1)
  - MALAISE [None]
